FAERS Safety Report 17966029 (Version 1)
Quarter: 2020Q3

REPORT INFORMATION
  Report Type: Report from Study
  Country: US (occurrence: US)
  Receive Date: 20200701
  Receipt Date: 20200701
  Transmission Date: 20201103
  Serious: Yes (Life-Threatening, Other)
  Sender: FDA-Public Use
  Company Number: US-ACCORD-186081

PATIENT
  Age: 12 Year
  Sex: Male

DRUGS (7)
  1. FLUDARABINE [Suspect]
     Active Substance: FLUDARABINE PHOSPHATE
     Indication: BONE MARROW CONDITIONING REGIMEN
     Dosage: ON DAYS ?6 THROUGH ?2 (TOTAL DOSE, 150 MG/M2)
     Route: 042
  2. CYCLOPHOSPHAMIDE/CYCLOPHOSPHAMIDE MONOHYDRATE [Suspect]
     Active Substance: CYCLOPHOSPHAMIDE
     Indication: IMMUNOSUPPRESSION
     Dosage: ON DAY +3
     Route: 042
  3. FILGRASTIM/GRANULOCYTE COLONY STIMULATING/LENOGRASTIM [Concomitant]
     Active Substance: GRANULOCYTE COLONY-STIMULATING FACTOR NOS
     Indication: PROPHYLAXIS
     Dosage: 5 UG/KG/DAY ON DAY +5
     Route: 042
  4. TACROLIMUS. [Suspect]
     Active Substance: TACROLIMUS
     Indication: IMMUNOSUPPRESSION
     Dosage: ON DAY +5
  5. MYCOPHENOLIC ACID. [Suspect]
     Active Substance: MYCOPHENOLIC ACID
     Indication: IMMUNOSUPPRESSION
     Dosage: ON DAY +5
  6. CYCLOPHOSPHAMIDE/CYCLOPHOSPHAMIDE MONOHYDRATE [Suspect]
     Active Substance: CYCLOPHOSPHAMIDE
     Indication: BONE MARROW CONDITIONING REGIMEN
     Dosage: ON DAYS ?6 AND ?5 (TOTAL DOSE, 50 MG/KG)
     Route: 042
  7. SIROLIMUS. [Suspect]
     Active Substance: SIROLIMUS
     Indication: IMMUNOSUPPRESSION
     Dosage: 2 MG (}1.5 M2 ) OR 1 MG/M2 (LESS THAN OR EQUAL TO 1.5 M2)
     Route: 048

REACTIONS (7)
  - Polyomavirus viraemia [Unknown]
  - Colitis [Unknown]
  - Human herpesvirus 6 infection [Unknown]
  - Pancreatitis [Unknown]
  - Hypoxia [Unknown]
  - Adenovirus infection [Recovered/Resolved]
  - Epstein-Barr virus infection [Unknown]
